FAERS Safety Report 4931439-3 (Version None)
Quarter: 2006Q1

REPORT INFORMATION
  Report Type: 
  Country: None (occurrence: None)
  Receive Date: 20060228
  Receipt Date: 20051129
  Transmission Date: 20060701
  Serious: Yes (Death, Hospitalization)
  Sender: FDA-Public Use
  Company Number: US-ELI_LILLY_AND_CO-US_0412108864

PATIENT
  Age: 73 Year
  Sex: Male

DRUGS (4)
  1. PERMAX [Suspect]
     Indication: PARKINSON'S DISEASE
     Dosage: 1.25 MG/ TID; UNKNOWN
  2. SINEMET [Concomitant]
  3. COMTAN [Concomitant]
  4. AMANTADINE HCL [Concomitant]

REACTIONS (29)
  - ANGINA UNSTABLE [None]
  - ANXIETY [None]
  - AORTIC VALVE INCOMPETENCE [None]
  - ATRIAL FIBRILLATION [None]
  - CARDIAC FAILURE CONGESTIVE [None]
  - CARDIAC STRESS TEST ABNORMAL [None]
  - CARDIAC VALVE DISEASE [None]
  - CHEST PAIN [None]
  - CORONARY ARTERY DISEASE [None]
  - DILATATION ATRIAL [None]
  - DRESSLER'S SYNDROME [None]
  - DYSPNOEA [None]
  - DYSURIA [None]
  - GENERAL PHYSICAL HEALTH DETERIORATION [None]
  - HYPERTENSION [None]
  - HYPOXIA [None]
  - LUNG INFILTRATION [None]
  - MITRAL VALVE CALCIFICATION [None]
  - MITRAL VALVE INCOMPETENCE [None]
  - PERICARDIAL EFFUSION [None]
  - PLEURAL EFFUSION [None]
  - PULMONARY EMBOLISM [None]
  - PULMONARY HYPERTENSION [None]
  - PULMONARY OEDEMA [None]
  - PULMONARY VALVE INCOMPETENCE [None]
  - TACHYPNOEA [None]
  - TRICUSPID VALVE INCOMPETENCE [None]
  - VENTRICULAR EXTRASYSTOLES [None]
  - WEIGHT INCREASED [None]
